FAERS Safety Report 6973064-9 (Version None)
Quarter: 2010Q3

REPORT INFORMATION
  Report Type: 
  Country: None (occurrence: None)
  Receive Date: 20100909
  Receipt Date: 20100831
  Transmission Date: 20110219
  Serious: Yes (Hospitalization, Other)
  Sender: FDA-Public Use
  Company Number: JP-BRISTOL-MYERS SQUIBB COMPANY-15185432

PATIENT
  Age: 62 Year
  Sex: Male
  Weight: 74 kg

DRUGS (6)
  1. SAXAGLIPTIN [Suspect]
     Indication: TYPE 2 DIABETES MELLITUS
     Dosage: 07JUN10
     Route: 048
     Dates: start: 20100511, end: 20100704
  2. MAGLAX [Concomitant]
     Dosage: TABS
     Dates: start: 20090410, end: 20100715
  3. ARTIST [Concomitant]
     Dosage: TABS
     Dates: start: 20090410
  4. ASPIRIN [Concomitant]
     Dosage: TABS
     Dates: start: 20090410
  5. REBAMIPIDE [Concomitant]
     Dosage: TABS
     Dates: start: 20100415, end: 20100704
  6. KETOPROFEN [Concomitant]
     Dosage: TAPE(INCLUDING POULTICE)
     Dates: start: 20100607

REACTIONS (2)
  - PROSTATE CANCER [None]
  - VIITH NERVE PARALYSIS [None]
